FAERS Safety Report 9129886 (Version 1)
Quarter: 2013Q1

REPORT INFORMATION
  Report Type: Spontaneous
  Country: US (occurrence: US)
  Receive Date: 20130228
  Receipt Date: 20130228
  Transmission Date: 20140127
  Serious: Yes (Hospitalization, Other)
  Sender: FDA-Public Use
  Company Number: US-UPSHER-SMITH LABORATORIES, INC.-13000520

PATIENT
  Age: 80 None
  Sex: Female

DRUGS (6)
  1. KLOR-CON M [Suspect]
     Indication: BLOOD POTASSIUM DECREASED
     Dosage: 40 MEQ, TID
     Route: 048
     Dates: start: 2009, end: 20130215
  2. DEMADEX                            /01036501/ [Concomitant]
     Dosage: UNK
  3. ATENOLOL [Concomitant]
     Dosage: UNK
  4. BENTYL [Concomitant]
     Dosage: UNK
  5. SYNTHROID [Concomitant]
     Dosage: UNK
  6. MEDROL                             /00049601/ [Concomitant]
     Dosage: UNK

REACTIONS (6)
  - Loss of consciousness [Recovered/Resolved]
  - Laceration [Recovered/Resolved]
  - Drug ineffective [Recovered/Resolved]
  - Product quality issue [Recovered/Resolved]
  - Fall [None]
  - Head injury [None]
